FAERS Safety Report 6678592-1 (Version None)
Quarter: 2010Q2

REPORT INFORMATION
  Report Type: 
  Country: None (occurrence: None)
  Receive Date: 20100412
  Receipt Date: 20100412
  Transmission Date: 20101027
  Serious: Yes (Other)
  Sender: FDA-Public Use
  Company Number: None

PATIENT
  Sex: Female

DRUGS (2)
  1. DURAGESIC-100 [Suspect]
     Indication: LUMBAR RADICULOPATHY
     Dosage: 2 PATCHES, OVER 72 HRS BLISTERS STARTED AFTER 1ST USE
  2. DURAGESIC-100 [Suspect]
     Indication: NECK PAIN
     Dosage: 2 PATCHES, OVER 72 HRS BLISTERS STARTED AFTER 1ST USE

REACTIONS (1)
  - BLISTER [None]
